FAERS Safety Report 5569496-6 (Version None)
Quarter: 2007Q4

REPORT INFORMATION
  Report Type: 
  Country: None (occurrence: None)
  Receive Date: 20071220
  Receipt Date: 20071218
  Transmission Date: 20080405
  Serious: Yes (Death)
  Sender: FDA-Public Use
  Company Number: JP-WYE-H01806007

PATIENT
  Age: 70 Year
  Sex: Female

DRUGS (5)
  1. AMIODARONE HCL [Suspect]
     Indication: ARRHYTHMIA
     Dosage: UNSPECIFIED
     Route: 042
     Dates: start: 20070101
  2. ACETYLSALICYLIC ACID SRT [Concomitant]
  3. TICLOPIDINE HCL [Concomitant]
  4. AMIODARONE HCL [Suspect]
     Dosage: UNSPECFIED
     Route: 048
     Dates: start: 20070101
  5. MEXITIL [Concomitant]

REACTIONS (1)
  - CARDIAC ARREST [None]
